FAERS Safety Report 9717518 (Version 1)
Quarter: 2013Q4

REPORT INFORMATION
  Report Type: Spontaneous
  Country: US (occurrence: US)
  Receive Date: 20131127
  Receipt Date: 20131127
  Transmission Date: 20140711
  Serious: No
  Sender: FDA-Public Use
  Company Number: US-GILEAD-2009-0020544

PATIENT
  Sex: Female

DRUGS (11)
  1. LETAIRIS [Suspect]
     Indication: PULMONARY ARTERIAL HYPERTENSION
     Route: 048
     Dates: start: 20080520
  2. COUMADIN [Concomitant]
  3. LASIX [Concomitant]
  4. SPIRIVA CAP HANDIHLD [Concomitant]
  5. ADVAIR DISC [Concomitant]
  6. IPRATROPIUM SOL ABUTEROL [Concomitant]
  7. K-DUR [Concomitant]
  8. IRON [Concomitant]
  9. SYNTHROID [Concomitant]
  10. TRIMETHORPRIM [Concomitant]
  11. NEXIUM [Concomitant]

REACTIONS (1)
  - Haemoglobin decreased [Not Recovered/Not Resolved]
